FAERS Safety Report 15989357 (Version 1)
Quarter: 2019Q1

REPORT INFORMATION
  Report Type: Spontaneous
  Country: US (occurrence: US)
  Receive Date: 20190221
  Receipt Date: 20190221
  Transmission Date: 20190418
  Serious: Yes (Other)
  Sender: FDA-Public Use
  Company Number: US-PFIZER INC-2016025786

PATIENT
  Age: 23 Year
  Sex: Male

DRUGS (2)
  1. BENEFIX [Suspect]
     Active Substance: COAGULATION FACTOR IX RECOMBINANT HUMAN\ISOPROPYL ALCOHOL
     Indication: FACTOR IX DEFICIENCY
     Dosage: 7000 IU, UNK(7000 UNITS (+/- 10%) = 100 U/KG=100 % DOSE DAILY FOR TWO WEEKS FOR LACERATION)
     Dates: start: 20160114, end: 20160214
  2. BENEFIX [Suspect]
     Active Substance: COAGULATION FACTOR IX RECOMBINANT HUMAN\ISOPROPYL ALCOHOL
     Dosage: 6500 IU (TOTAL DOSAGE 65001U +/-10% #OF DOSES: 3/= 100 U/KG FOR BLEEDS ON DEMAND)

REACTIONS (1)
  - Haemorrhage [Unknown]
